FAERS Safety Report 6304542-3 (Version None)
Quarter: 2009Q3

REPORT INFORMATION
  Report Type: 
  Country: None (occurrence: None)
  Receive Date: 20090806
  Receipt Date: 20090730
  Transmission Date: 20100115
  Serious: Yes (Other)
  Sender: FDA-Public Use
  Company Number: CHPA2009US16115

PATIENT
  Age: 77 Year
  Sex: Male
  Weight: 88 kg

DRUGS (4)
  1. VOLTAREN [Suspect]
     Indication: CARPAL TUNNEL SYNDROME
     Dosage: 2 G,  APPLIED WITH FINGER TO RIGHT WRIST AND RIGHT ELBOW 3-4 TIMES EACH DAY, TOPICAL
     Route: 061
     Dates: start: 20090623, end: 20090731
  2. TOPROL-XL [Concomitant]
  3. LISINOPRIL [Concomitant]
  4. DYAZIDE [Concomitant]

REACTIONS (7)
  - BLOOD PRESSURE FLUCTUATION [None]
  - GASTROINTESTINAL MOTILITY DISORDER [None]
  - MUSCLE SPASMS [None]
  - NERVOUSNESS [None]
  - TREMOR [None]
  - WEIGHT DECREASED [None]
  - WRONG TECHNIQUE IN DRUG USAGE PROCESS [None]
